FAERS Safety Report 25868815 (Version 1)
Quarter: 2025Q4

REPORT INFORMATION
  Report Type: Spontaneous
  Country: US (occurrence: US)
  Receive Date: 20251001
  Receipt Date: 20251001
  Transmission Date: 20260117
  Serious: Yes (Death, Other)
  Sender: AMGEN
  Company Number: US-AMGEN-USASP2025192231

PATIENT
  Age: 74 Year
  Sex: Male

DRUGS (3)
  1. PREDNISONE [Suspect]
     Active Substance: PREDNISONE
     Indication: Kidney transplant rejection
     Dosage: UNK
     Route: 065
  2. CEMIPLIMAB [Concomitant]
     Active Substance: CEMIPLIMAB
     Indication: Skin cancer
     Dosage: UNK
  3. CYCLOSPORINE [Concomitant]
     Active Substance: CYCLOSPORINE
     Indication: Kidney transplant rejection

REACTIONS (3)
  - Death [Fatal]
  - Renal transplant failure [Unknown]
  - Therapy partial responder [Unknown]
